FAERS Safety Report 12923789 (Version 4)
Quarter: 2017Q4

REPORT INFORMATION
  Report Type: Other
  Country: CA (occurrence: CA)
  Receive Date: 20161109
  Receipt Date: 20171004
  Transmission Date: 20180320
  Serious: Yes (Other)
  Sender: FDA-Public Use
  Company Number: CA-APOTEX-2016AP013938

PATIENT
  Age: 21 Year
  Sex: Male

DRUGS (23)
  1. APO-LEVETIRACETAM [Suspect]
     Active Substance: LEVETIRACETAM
     Indication: STATUS EPILEPTICUS
  2. PHENYTOIN. [Suspect]
     Active Substance: PHENYTOIN
     Indication: STATUS EPILEPTICUS
  3. PROPOFOL. [Suspect]
     Active Substance: PROPOFOL
     Indication: SEIZURE
     Dosage: UNK
     Route: 065
  4. APO-MIDAZOLAM INJECTABLE (APOTEX STD) [Suspect]
     Active Substance: MIDAZOLAM HYDROCHLORIDE
     Indication: SEIZURE
     Dosage: UNK
     Route: 065
  5. VALPROATE SODIUM. [Concomitant]
     Active Substance: VALPROATE SODIUM
     Indication: STATUS EPILEPTICUS
     Route: 065
  6. METHYLPREDNISOLONE. [Suspect]
     Active Substance: METHYLPREDNISOLONE
     Indication: PRODUCT USED FOR UNKNOWN INDICATION
     Dosage: UNK
     Route: 042
  7. FORANE [Suspect]
     Active Substance: ISOFLURANE
     Indication: OFF LABEL USE
  8. IMMUNE GLOBULIN [Concomitant]
     Active Substance: HUMAN IMMUNOGLOBULIN G
     Indication: PRODUCT USED FOR UNKNOWN INDICATION
     Dosage: UNK
     Route: 065
  9. ISOFLURANE. [Suspect]
     Active Substance: ISOFLURANE
     Indication: SEIZURE
     Dosage: UNK
     Route: 065
  10. LACOSAMIDE. [Suspect]
     Active Substance: LACOSAMIDE
     Indication: SEIZURE
     Dosage: UNK
     Route: 065
  11. LACOSAMIDE. [Suspect]
     Active Substance: LACOSAMIDE
     Indication: STATUS EPILEPTICUS
  12. PHENYTOIN. [Suspect]
     Active Substance: PHENYTOIN
     Indication: SEIZURE
     Dosage: UNK
     Route: 065
  13. PROPOFOL. [Suspect]
     Active Substance: PROPOFOL
     Indication: STATUS EPILEPTICUS
  14. APO-LEVETIRACETAM [Suspect]
     Active Substance: LEVETIRACETAM
     Indication: SEIZURE
     Dosage: UNK
     Route: 065
  15. PHENOBARBITAL. [Suspect]
     Active Substance: PHENOBARBITAL
     Indication: SEIZURE
     Dosage: 100 MG, BID
     Route: 042
  16. FORANE [Suspect]
     Active Substance: ISOFLURANE
     Indication: STATUS EPILEPTICUS
  17. FORANE [Suspect]
     Active Substance: ISOFLURANE
     Indication: SEIZURE
  18. APO-MIDAZOLAM INJECTABLE (APOTEX STD) [Suspect]
     Active Substance: MIDAZOLAM HYDROCHLORIDE
     Indication: ELECTROENCEPHALOGRAM ABNORMAL
  19. FORANE [Suspect]
     Active Substance: ISOFLURANE
     Indication: ANAESTHESIA PROCEDURE
     Dosage: UNK
     Route: 050
  20. APO-MIDAZOLAM INJECTABLE (APOTEX STD) [Suspect]
     Active Substance: MIDAZOLAM HYDROCHLORIDE
     Indication: STATUS EPILEPTICUS
  21. PHENOBARBITAL. [Suspect]
     Active Substance: PHENOBARBITAL
     Indication: STATUS EPILEPTICUS
  22. APO-VALPROIC [Suspect]
     Active Substance: VALPROIC ACID
     Indication: SEIZURE
     Dosage: UNK
     Route: 065
  23. METHYLPREDNISOLONE. [Suspect]
     Active Substance: METHYLPREDNISOLONE
     Indication: STATUS EPILEPTICUS

REACTIONS (14)
  - Heart rate increased [Unknown]
  - Necrosis ischaemic [Unknown]
  - Abdominal distension [Unknown]
  - Superinfection [Unknown]
  - Hypotension [Unknown]
  - Pyrexia [Unknown]
  - Ileus [Unknown]
  - Leukocytosis [Unknown]
  - Mucosal ulceration [Unknown]
  - Systemic inflammatory response syndrome [Unknown]
  - Clostridium difficile colitis [Unknown]
  - Drug ineffective [Unknown]
  - Blood lactic acid increased [Unknown]
  - Intestinal ischaemia [Unknown]
